FAERS Safety Report 16336536 (Version 1)
Quarter: 2019Q2

REPORT INFORMATION
  Report Type: Spontaneous
  Country: US (occurrence: US)
  Receive Date: 20190521
  Receipt Date: 20190521
  Transmission Date: 20190711
  Serious: Yes (Other)
  Sender: FDA-Public Use
  Company Number: PHEH2019US020282

PATIENT
  Age: 80 Year
  Sex: Male
  Weight: 89 kg

DRUGS (2)
  1. ENTRESTO [Suspect]
     Active Substance: SACUBITRIL\VALSARTAN
     Indication: POLYMYALGIA RHEUMATICA
     Dosage: 100 MG, BID (49/51 MG)
     Route: 048
     Dates: start: 20160708, end: 20160912
  2. ENTRESTO [Suspect]
     Active Substance: SACUBITRIL\VALSARTAN
     Indication: MYALGIA

REACTIONS (5)
  - Myalgia [Recovered/Resolved]
  - Pain [Recovered/Resolved]
  - Polymyalgia rheumatica [Recovered/Resolved]
  - Product use in unapproved indication [Unknown]
  - Musculoskeletal stiffness [Recovered/Resolved]

NARRATIVE: CASE EVENT DATE: 20160901
